FAERS Safety Report 23362256 (Version 5)
Quarter: 2025Q4

REPORT INFORMATION
  Report Type: Spontaneous
  Country: US (occurrence: US)
  Receive Date: 20240103
  Receipt Date: 20251031
  Transmission Date: 20260117
  Serious: No
  Sender: PFIZER
  Company Number: US-PFIZER INC-PV202300209618

PATIENT
  Age: 49 Year
  Sex: Male
  Weight: 62.676 kg

DRUGS (4)
  1. BOSULIF [Suspect]
     Active Substance: BOSUTINIB MONOHYDRATE
     Indication: Chronic myeloid leukaemia
     Dosage: 400 MG
  2. BOSULIF [Suspect]
     Active Substance: BOSUTINIB MONOHYDRATE
     Dosage: 200 MG, DAILY (TAKE WHOLE WITH WATER AND FOOD)
     Route: 048
  3. BOSULIF [Suspect]
     Active Substance: BOSUTINIB MONOHYDRATE
     Dosage: 100 MG (EVERY OTHER DAY. TAKE WHOLE WITH WATER AND FOOD)
     Route: 048
  4. BOSULIF [Suspect]
     Active Substance: BOSUTINIB MONOHYDRATE
     Dosage: 100MG; TAKE 1 TABLET BY MOUTH DAILY. TAKE WHOLE WITH WATER AND FOOD

REACTIONS (2)
  - Drug hypersensitivity [Unknown]
  - Off label use [Unknown]
